FAERS Safety Report 4896695-9 (Version None)
Quarter: 2005Q4

REPORT INFORMATION
  Report Type: 
  Country: None (occurrence: None)
  Receive Date: 20051228
  Receipt Date: 20051019
  Transmission Date: 20060501
  Serious: Yes (Hospitalization)
  Sender: FDA-Public Use
  Company Number: USA0510111408

PATIENT
  Age: 29 Year
  Sex: Female

DRUGS (3)
  1. HUMULIN R [Suspect]
     Indication: DIABETES MELLITUS INSULIN-DEPENDENT
     Dates: start: 19940301, end: 19940101
  2. HUMULIN R [Suspect]
     Indication: DIABETES MELLITUS INSULIN-DEPENDENT
     Dates: start: 19740101
  3. HUMULIN L [Suspect]
     Dates: start: 19740101

REACTIONS (1)
  - BLOOD GLUCOSE INCREASED [None]
